FAERS Safety Report 10447605 (Version 1)
Quarter: 2014Q3

REPORT INFORMATION
  Report Type: Spontaneous
  Country: US (occurrence: US)
  Receive Date: 20140911
  Receipt Date: 20140911
  Transmission Date: 20150326
  Serious: No
  Sender: FDA-Public Use
  Company Number: US-BEH-2014040565

PATIENT
  Sex: Female
  Weight: 58 kg

DRUGS (10)
  1. DIPHENHYDRAMINE [Concomitant]
     Active Substance: DIPHENHYDRAMINE
  2. VENTOLIN [Concomitant]
     Active Substance: ALBUTEROL SULFATE
  3. SODIUM CHLORIDE. [Concomitant]
     Active Substance: SODIUM CHLORIDE
  4. ZITHROMAX [Concomitant]
     Active Substance: AZITHROMYCIN DIHYDRATE
  5. CENTRUM MULTIVITAMIN [Concomitant]
  6. LIDOCAINE/PRILOCAINE [Concomitant]
  7. VITAMIN B12 [Concomitant]
     Active Substance: CYANOCOBALAMIN
  8. EPIPEN [Concomitant]
     Active Substance: EPINEPHRINE
  9. ZEMAIRA [Suspect]
     Active Substance: .ALPHA.1-PROTEINASE INHIBITOR HUMAN
     Indication: ALPHA-1 ANTI-TRYPSIN DEFICIENCY
     Dosage: 0.08 ML/KG/MIN (4.7 ML PERMINUTE)
     Route: 042
  10. NAPROXEN. [Concomitant]
     Active Substance: NAPROXEN

REACTIONS (2)
  - Headache [Unknown]
  - Fatigue [Unknown]
